FAERS Safety Report 8006882-9 (Version None)
Quarter: 2011Q4

REPORT INFORMATION
  Report Type: 
  Country: None (occurrence: None)
  Receive Date: 20111227
  Receipt Date: 20111220
  Transmission Date: 20120403
  Serious: Yes (Hospitalization, Other)
  Sender: FDA-Public Use
  Company Number: US-JNJFOC-20111100494

PATIENT
  Sex: Male
  Weight: 58.97 kg

DRUGS (17)
  1. CONCERTA [Suspect]
     Route: 048
     Dates: start: 20111016
  2. CONCERTA [Suspect]
     Route: 048
     Dates: start: 20111012
  3. LITHIUM [Concomitant]
     Indication: DEPRESSION
     Route: 048
     Dates: start: 20111001
  4. CONCERTA [Suspect]
     Route: 048
     Dates: start: 20111014
  5. CONCERTA [Suspect]
     Route: 048
     Dates: start: 20111015
  6. VYVANSE [Suspect]
     Indication: PRODUCT USED FOR UNKNOWN INDICATION
     Route: 065
     Dates: start: 20110919
  7. VYVANSE [Suspect]
     Route: 065
     Dates: start: 20110920
  8. CONCERTA [Suspect]
     Route: 048
     Dates: end: 20110912
  9. CONCERTA [Suspect]
     Indication: DEPRESSION
     Route: 048
     Dates: start: 20111013
  10. CONCERTA [Suspect]
     Route: 048
     Dates: end: 20110912
  11. CONCERTA [Suspect]
     Indication: ATTENTION DEFICIT/HYPERACTIVITY DISORDER
     Route: 048
     Dates: start: 20111013
  12. VYVANSE [Suspect]
     Route: 065
     Dates: start: 20110921
  13. LITHIUM [Concomitant]
     Indication: ATTENTION DEFICIT/HYPERACTIVITY DISORDER
     Route: 048
     Dates: start: 20111001
  14. CONCERTA [Suspect]
     Route: 048
     Dates: start: 20111012
  15. CONCERTA [Suspect]
     Route: 048
     Dates: start: 20111016
  16. CONCERTA [Suspect]
     Route: 048
     Dates: start: 20111015
  17. CONCERTA [Suspect]
     Route: 048
     Dates: start: 20111014

REACTIONS (13)
  - ABNORMAL BEHAVIOUR [None]
  - DEPRESSION [None]
  - IRRITABILITY [None]
  - TENSION [None]
  - MENTAL DISORDER [None]
  - SUICIDAL IDEATION [None]
  - VIOLENCE-RELATED SYMPTOM [None]
  - EXPRESSIVE LANGUAGE DISORDER [None]
  - MENTAL STATUS CHANGES [None]
  - BIPOLAR DISORDER [None]
  - AGGRESSION [None]
  - PSYCHOTIC DISORDER [None]
  - HOSTILITY [None]
